FAERS Safety Report 5532432-2 (Version None)
Quarter: 2007Q4

REPORT INFORMATION
  Report Type: 
  Country: None (occurrence: None)
  Receive Date: 20071120
  Receipt Date: 20070723
  Transmission Date: 20080405
  Serious: No
  Sender: FDA-Public Use
  Company Number: WAES 0707USA03727

PATIENT
  Age: 62 Year
  Sex: Female

DRUGS (5)
  1. JANUVIA [Suspect]
     Indication: DIABETES MELLITUS
     Dosage: 100 MG/DAILY/PO
     Route: 048
     Dates: start: 20070717
  2. COZAAR [Concomitant]
  3. GLUCOPHAGE [Concomitant]
  4. PREVACID [Concomitant]
  5. VYTORIN [Concomitant]

REACTIONS (1)
  - DRUG INEFFECTIVE [None]
